FAERS Safety Report 9339503 (Version 2)
Quarter: 2013Q2

REPORT INFORMATION
  Report Type: Report from Study
  Country: US (occurrence: US)
  Receive Date: 20130610
  Receipt Date: 20130612
  Transmission Date: 20140414
  Serious: Yes (Other)
  Sender: FDA-Public Use
  Company Number: US-SANOFI-AVENTIS-2013SA056656

PATIENT
  Sex: Male

DRUGS (1)
  1. AUBAGIO [Suspect]
     Route: 048
     Dates: start: 20130517

REACTIONS (7)
  - Eye swelling [Unknown]
  - Swollen tongue [Unknown]
  - Penile swelling [Unknown]
  - Abdominal distension [Unknown]
  - Abdominal tenderness [Unknown]
  - Dysuria [Unknown]
  - Hypersensitivity [Unknown]
